FAERS Safety Report 10731232 (Version 2)
Quarter: 2015Q1

REPORT INFORMATION
  Report Type: Spontaneous
  Country: US (occurrence: US)
  Receive Date: 20150122
  Receipt Date: 20150123
  Transmission Date: 20150721
  Serious: Yes (Other)
  Sender: FDA-Public Use
  Company Number: US-ASTRAZENECA-2015SE04449

PATIENT
  Age: 76 Year
  Sex: Female
  Weight: 59 kg

DRUGS (5)
  1. NEURONTIN [Suspect]
     Active Substance: GABAPENTIN
     Indication: DIZZINESS
  2. SYMBICORT [Suspect]
     Active Substance: BUDESONIDE\FORMOTEROL FUMARATE DIHYDRATE
     Indication: CHRONIC OBSTRUCTIVE PULMONARY DISEASE
     Dosage: 80/4.5 MCG, 2 PUFFS, BID
     Route: 055
     Dates: start: 2011
  3. SYMBICORT [Suspect]
     Active Substance: BUDESONIDE\FORMOTEROL FUMARATE DIHYDRATE
     Indication: CHRONIC OBSTRUCTIVE PULMONARY DISEASE
     Dosage: 160/4.05 MCG, 2 PUFFS BID
     Route: 055
  4. PLAVIX [Suspect]
     Active Substance: CLOPIDOGREL BISULFATE
  5. CRESTOR [Suspect]
     Active Substance: ROSUVASTATIN CALCIUM
     Indication: BLOOD CHOLESTEROL
     Route: 048
     Dates: end: 201411

REACTIONS (14)
  - Blood cholesterol increased [Unknown]
  - Pneumonia [Recovered/Resolved]
  - Dizziness [Unknown]
  - Memory impairment [Not Recovered/Not Resolved]
  - Transient ischaemic attack [Unknown]
  - Haemodilution [Recovered/Resolved]
  - Chest discomfort [Recovered/Resolved]
  - Productive cough [Unknown]
  - Intentional product misuse [Not Recovered/Not Resolved]
  - Chronic obstructive pulmonary disease [Unknown]
  - Therapeutic product ineffective [Unknown]
  - Off label use [Unknown]
  - Bronchitis [Recovered/Resolved]
  - Asthma [Unknown]

NARRATIVE: CASE EVENT DATE: 2012
